FAERS Safety Report 8843804 (Version 2)
Quarter: 2012Q4

REPORT INFORMATION
  Report Type: 
  Country: US (occurrence: US)
  Receive Date: 20121016
  Receipt Date: 20121105
  Transmission Date: 20130627
  Serious: No
  Sender: FDA-Public Use
  Company Number: US-BAYER-2012-104940

PATIENT
  Age: 40 Year
  Sex: Male

DRUGS (1)
  1. GADAVIST [Suspect]
     Indication: NUCLEAR MAGNETIC RESONANCE IMAGING SPINAL
     Dosage: 10 ml, UNK
     Dates: start: 20120926, end: 20120926

REACTIONS (3)
  - Hyperhidrosis [None]
  - Vomiting [None]
  - Nausea [None]
